FAERS Safety Report 10871539 (Version 1)
Quarter: 2015Q1

REPORT INFORMATION
  Report Type: Spontaneous
  Country: NO (occurrence: NO)
  Receive Date: 20150226
  Receipt Date: 20150226
  Transmission Date: 20150721
  Serious: Yes (Other)
  Sender: FDA-Public Use
  Company Number: NO-GLAXOSMITHKLINE-NO2015GSK023128

PATIENT

DRUGS (1)
  1. TROBALT [Suspect]
     Active Substance: EZOGABINE
     Indication: EPILEPSY
     Route: 048

REACTIONS (3)
  - Pigmentation disorder [Unknown]
  - Seizure [Unknown]
  - Retinal pigmentation [Unknown]
